FAERS Safety Report 9685597 (Version 1)
Quarter: 2013Q4

REPORT INFORMATION
  Report Type: Spontaneous
  Country: US (occurrence: US)
  Receive Date: 20131113
  Receipt Date: 20131113
  Transmission Date: 20140711
  Serious: Yes (Other)
  Sender: FDA-Public Use
  Company Number: US-RB-059782-13

PATIENT
  Age: 39 Year
  Sex: Female

DRUGS (18)
  1. MUCINEX FAST-MAX SEVERE CONGESTION AND COUGH [Suspect]
     Indication: NASOPHARYNGITIS
     Dosage: 2 TABLETS AT AT 9:45PM AS DIRECTED ON 07-NOV-2013
     Route: 048
     Dates: start: 20131107
  2. MUCINEX FAST MAX SEVERE CONGESTION + COUGH CAPLETS [Suspect]
     Indication: NASOPHARYNGITIS
     Dosage: 2 TABLETS AT AT 9:45PM AS DIRECTED ON 07-NOV-2013
     Route: 048
     Dates: start: 20131107
  3. ENDOCET [Concomitant]
     Indication: PRODUCT USED FOR UNKNOWN INDICATION
  4. COUMADIN [Concomitant]
     Indication: PRODUCT USED FOR UNKNOWN INDICATION
  5. SYNTHROID [Concomitant]
     Indication: PRODUCT USED FOR UNKNOWN INDICATION
  6. SOMA [Concomitant]
     Indication: PRODUCT USED FOR UNKNOWN INDICATION
  7. KEPPRA [Concomitant]
     Indication: PRODUCT USED FOR UNKNOWN INDICATION
  8. POTASSIUM [Concomitant]
     Indication: PRODUCT USED FOR UNKNOWN INDICATION
  9. NEURONTIN [Concomitant]
     Indication: PRODUCT USED FOR UNKNOWN INDICATION
  10. KLONOPIN [Concomitant]
     Indication: PRODUCT USED FOR UNKNOWN INDICATION
  11. VITAMIN D [Concomitant]
     Indication: PRODUCT USED FOR UNKNOWN INDICATION
  12. FOLIC ACID [Concomitant]
     Indication: PRODUCT USED FOR UNKNOWN INDICATION
  13. ZANTAC [Concomitant]
     Indication: PRODUCT USED FOR UNKNOWN INDICATION
  14. LISINOPRIL [Concomitant]
     Indication: PRODUCT USED FOR UNKNOWN INDICATION
     Dosage: DAILY
  15. PHENERGAN [Concomitant]
     Indication: PRODUCT USED FOR UNKNOWN INDICATION
     Dosage: DAILY
  16. BENADRYL [Concomitant]
     Indication: PRODUCT USED FOR UNKNOWN INDICATION
     Dosage: DAILY
  17. ADVAIR DISKUS [Concomitant]
     Indication: PRODUCT USED FOR UNKNOWN INDICATION
     Dosage: DAILY
  18. CELEXA [Concomitant]
     Indication: PRODUCT USED FOR UNKNOWN INDICATION
     Dosage: DAILY

REACTIONS (5)
  - Myocardial infarction [Recovered/Resolved]
  - Dyspnoea [Recovered/Resolved]
  - Chest pain [Recovered/Resolved]
  - Heart rate increased [Recovered/Resolved]
  - Hypertension [Recovered/Resolved]
